FAERS Safety Report 10602042 (Version 1)
Quarter: 2014Q4

REPORT INFORMATION
  Report Type: Spontaneous
  Country: GB (occurrence: None)
  Receive Date: 20141120
  Receipt Date: 20141120
  Transmission Date: 20150529
  Serious: Yes (Other)
  Sender: FDA-Public Use
  Company Number: F2014-003336

PATIENT
  Age: 76 Year
  Sex: Female
  Weight: 66.7 kg

DRUGS (5)
  1. ADCAL /00056901/ (CARBAZOCHROME) [Concomitant]
  2. CITALOPRAM [Concomitant]
     Active Substance: CITALOPRAM HYDROBROMIDE
  3. ANASTROZOLE. [Concomitant]
     Active Substance: ANASTROZOLE
  4. OMEPRAZOLE (OMEPRAZOLE) [Suspect]
     Active Substance: OMEPRAZOLE
     Route: 048
     Dates: start: 20141104, end: 20141105
  5. ACTONEL [Suspect]
     Active Substance: RISEDRONATE SODIUM
     Route: 048
     Dates: start: 20140801, end: 20141111

REACTIONS (3)
  - Mouth ulceration [None]
  - Aphthous stomatitis [None]
  - Dyspepsia [None]

NARRATIVE: CASE EVENT DATE: 2014
